FAERS Safety Report 6894670-6 (Version None)
Quarter: 2010Q3

REPORT INFORMATION
  Report Type: 
  Country: None (occurrence: None)
  Receive Date: 20100802
  Receipt Date: 20100728
  Transmission Date: 20110219
  Serious: Yes (Hospitalization)
  Sender: FDA-Public Use
  Company Number: HU-BRISTOL-MYERS SQUIBB COMPANY-15214901

PATIENT
  Age: 66 Year
  Sex: Male
  Weight: 65 kg

DRUGS (20)
  1. CISPLATIN [Suspect]
     Indication: NON-SMALL CELL LUNG CANCER
     Route: 042
     Dates: start: 20100618, end: 20100618
  2. PEMETREXED DISODIUM [Suspect]
     Indication: NON-SMALL CELL LUNG CANCER
     Route: 042
     Dates: start: 20100618, end: 20100618
  3. SERETIDE [Concomitant]
     Indication: CHRONIC OBSTRUCTIVE PULMONARY DISEASE
     Route: 065
     Dates: start: 20100530
  4. SPIRIVA [Concomitant]
     Indication: CHRONIC OBSTRUCTIVE PULMONARY DISEASE
     Route: 065
     Dates: start: 20100530
  5. VENTOLIN [Concomitant]
     Indication: CHRONIC OBSTRUCTIVE PULMONARY DISEASE
     Route: 065
     Dates: start: 20100530
  6. THEOSPIREX [Concomitant]
     Indication: CHRONIC OBSTRUCTIVE PULMONARY DISEASE
     Route: 065
     Dates: start: 20100401, end: 20100630
  7. AMBROXOL [Concomitant]
     Indication: CHRONIC OBSTRUCTIVE PULMONARY DISEASE
     Route: 065
     Dates: start: 20100401, end: 20100625
  8. ANDAXIN [Concomitant]
     Indication: ALCOHOLISM
     Route: 065
     Dates: start: 20100401, end: 20100625
  9. TIAPRIDAL [Concomitant]
     Indication: ALCOHOLISM
     Route: 065
     Dates: start: 20100401, end: 20100630
  10. FOLIC ACID [Concomitant]
     Indication: PREMEDICATION
     Route: 065
     Dates: start: 20100610, end: 20100630
  11. MEDROL [Concomitant]
     Indication: PREMEDICATION
     Route: 065
     Dates: start: 20100617, end: 20100619
  12. ZOFRAN [Concomitant]
     Indication: PROPHYLAXIS OF NAUSEA AND VOMITING
     Route: 065
     Dates: start: 20100618, end: 20100624
  13. SODIUM CHLORIDE [Concomitant]
     Indication: RENAL FAILURE
     Route: 065
     Dates: start: 20100625, end: 20100625
  14. MEGACE [Concomitant]
     Indication: DECREASED APPETITE
     Route: 065
     Dates: start: 20100625, end: 20100630
  15. MEGACE [Concomitant]
     Indication: PROPHYLAXIS
     Route: 065
     Dates: start: 20100625, end: 20100630
  16. DALACIN [Concomitant]
     Indication: RASH
     Route: 065
     Dates: start: 20100625
  17. ELOCON [Concomitant]
     Indication: RASH
     Route: 065
     Dates: start: 20100625
  18. QUAMATEL [Concomitant]
     Indication: PROPHYLAXIS AGAINST GASTROINTESTINAL ULCER
     Route: 065
     Dates: start: 20100630
  19. CLEXANE [Concomitant]
     Indication: THROMBOSIS PROPHYLAXIS
     Route: 065
     Dates: start: 20100630
  20. BETALOC [Concomitant]
     Indication: ATRIAL FIBRILLATION
     Route: 065
     Dates: start: 20100630

REACTIONS (2)
  - ILEUS PARALYTIC [None]
  - RENAL FAILURE [None]
